FAERS Safety Report 6502358-6 (Version None)
Quarter: 2009Q4

REPORT INFORMATION
  Report Type: 
  Country: None (occurrence: None)
  Receive Date: 20091216
  Receipt Date: 20091203
  Transmission Date: 20100525
  Serious: No
  Sender: FDA-Public Use
  Company Number: US-ABBOTT-09P-163-0612533-00

PATIENT
  Sex: Female
  Weight: 77.18 kg

DRUGS (8)
  1. TRILIPIX [Suspect]
     Indication: BLOOD CHOLESTEROL INCREASED
     Route: 048
     Dates: start: 20091001, end: 20091116
  2. LANTUS [Concomitant]
     Indication: DIABETES MELLITUS
     Dosage: DINNER TIME
     Route: 058
  3. HUMALOG [Concomitant]
     Indication: DIABETES MELLITUS
     Dosage: SLIDING SCALE
     Route: 058
  4. ATACAND [Concomitant]
     Indication: HYPERTENSION
     Route: 048
  5. PREMARIN [Concomitant]
     Indication: MENOPAUSE
     Route: 048
  6. FISH OIL [Concomitant]
     Indication: MEDICAL DIET
     Route: 048
  7. CALCIUM [Concomitant]
     Indication: MINERAL SUPPLEMENTATION
  8. CHONDROITIN [Concomitant]
     Indication: DRUG USE FOR UNKNOWN INDICATION

REACTIONS (3)
  - HEADACHE [None]
  - NECK PAIN [None]
  - VISION BLURRED [None]
